FAERS Safety Report 25505497 (Version 1)
Quarter: 2025Q3

REPORT INFORMATION
  Report Type: Spontaneous
  Country: US (occurrence: None)
  Receive Date: 20250702
  Receipt Date: 20250702
  Transmission Date: 20251020
  Serious: Yes (unspecified)
  Sender: FDA-CTU
  Company Number: None

PATIENT
  Age: 35 Year
  Sex: Female
  Weight: 54 kg

DRUGS (2)
  1. CEQUA [Suspect]
     Active Substance: CYCLOSPORINE
  2. MIRALAX [Concomitant]
     Active Substance: POLYETHYLENE GLYCOL 3350

REACTIONS (2)
  - Ocular hyperaemia [None]
  - Ocular discomfort [None]
